FAERS Safety Report 8834859 (Version 1)
Quarter: 2012Q4

REPORT INFORMATION
  Report Type: Spontaneous
  Country: US (occurrence: None)
  Receive Date: 20121009
  Receipt Date: 20121009
  Transmission Date: 20130627
  Serious: Yes (Disabling)
  Sender: FDA-Public Use
  Company Number: 2012GMK003854

PATIENT
  Age: 77 Year
  Sex: Male
  Weight: 120 kg

DRUGS (2)
  1. ROPINIROLE [Suspect]
     Indication: ILL-DEFINED DISORDER
     Dates: start: 20120627
  2. AMOXICILLIN (AMOXICILLIN) [Concomitant]

REACTIONS (2)
  - Memory impairment [None]
  - Tardive dyskinesia [None]
